FAERS Safety Report 6823963-3 (Version None)
Quarter: 2010Q3

REPORT INFORMATION
  Report Type: 
  Country: None (occurrence: None)
  Receive Date: 20100708
  Receipt Date: 20060926
  Transmission Date: 20110219
  Serious: No
  Sender: FDA-Public Use
  Company Number: US-PFIZER INC-2006117679

PATIENT
  Sex: Male
  Weight: 89.81 kg

DRUGS (12)
  1. CHANTIX [Suspect]
     Indication: SMOKING CESSATION THERAPY
     Dates: start: 20060101
  2. LEXAPRO [Suspect]
     Indication: SMOKING CESSATION THERAPY
     Dates: start: 20060101
  3. VYTORIN [Concomitant]
  4. ZOCOR [Concomitant]
  5. LOPRESSOR [Concomitant]
  6. COZAAR [Concomitant]
  7. ISOSORBIDE [Concomitant]
  8. PLETAL [Concomitant]
  9. FISH OIL [Concomitant]
  10. VITAMIN E [Concomitant]
  11. ACETYLSALICYLIC ACID [Concomitant]
  12. VITAMIN C [Concomitant]

REACTIONS (2)
  - DIARRHOEA [None]
  - NAUSEA [None]
